FAERS Safety Report 15179540 (Version 2)
Quarter: 2019Q4

REPORT INFORMATION
  Report Type: Report from Study
  Country: DE (occurrence: DE)
  Receive Date: 20180723
  Receipt Date: 20191210
  Transmission Date: 20200122
  Serious: Yes (Other)
  Sender: FDA-Public Use
  Company Number: DE-GILEAD-2018-0350027

PATIENT
  Age: 71 Year
  Sex: Female
  Weight: 68 kg

DRUGS (10)
  1. SPIRONOLACTON [Concomitant]
     Active Substance: SPIRONOLACTONE
  2. ASA [Concomitant]
     Active Substance: ASPIRIN
  3. RETARPEN                           /00000904/ [Concomitant]
     Dosage: UNK
  4. HAEMOPROTECT [Concomitant]
     Dosage: UNK
  5. OLYSIO [Concomitant]
     Active Substance: SIMEPREVIR
     Indication: CHRONIC HEPATITIS C
     Dosage: 150 MG, QD
     Route: 048
     Dates: start: 20140804, end: 20141026
  6. SOFOSBUVIR [Suspect]
     Active Substance: SOFOSBUVIR
     Indication: CHRONIC HEPATITIS C
     Dosage: 400 MG, QD
     Route: 048
     Dates: start: 20140804, end: 20141026
  7. PENICILLIN                         /00000901/ [Concomitant]
     Active Substance: PENICILLIN G
  8. TORASEMID [Concomitant]
     Active Substance: TORSEMIDE
     Dosage: UNK
     Dates: end: 20151005
  9. TORASEMID [Concomitant]
     Active Substance: TORSEMIDE
     Dosage: UNK
  10. AMOXICILLIN. [Concomitant]
     Active Substance: AMOXICILLIN

REACTIONS (2)
  - Erysipelas [Recovering/Resolving]
  - Blood loss anaemia [Recovering/Resolving]
